FAERS Safety Report 12238566 (Version 1)
Quarter: 2016Q2

REPORT INFORMATION
  Report Type: Spontaneous
  Country: US (occurrence: None)
  Receive Date: 20160404
  Receipt Date: 20160404
  Transmission Date: 20160815
  Serious: No
  Sender: FDA-Public Use
  Company Number: None

PATIENT
  Age: 65 Year
  Sex: Male

DRUGS (1)
  1. CIMZIA [Suspect]
     Active Substance: CERTOLIZUMAB PEGOL
     Indication: CROHN^S DISEASE
     Dosage: 400MG ONCE EVERY 4 WEEKS SUBQ
     Route: 058
     Dates: start: 20151002, end: 201602

REACTIONS (3)
  - Muscular weakness [None]
  - Dysphagia [None]
  - Eyelid ptosis [None]

NARRATIVE: CASE EVENT DATE: 201602
